FAERS Safety Report 20249252 (Version 1)
Quarter: 2021Q4

REPORT INFORMATION
  Report Type: Spontaneous
  Country: US (occurrence: US)
  Receive Date: 20211229
  Receipt Date: 20211229
  Transmission Date: 20220303
  Serious: No
  Sender: FDA-Public Use
  Company Number: US-PFIZER INC-202101119739

PATIENT
  Age: 81 Year
  Sex: Female
  Weight: 100.69 kg

DRUGS (2)
  1. IBRANCE [Suspect]
     Active Substance: PALBOCICLIB
     Indication: Bone cancer metastatic
     Dosage: 100 MG, CYCLIC (21 DAYS AND THEN IS OFF FOR 7 DAYS)
     Route: 048
  2. IBRANCE [Suspect]
     Active Substance: PALBOCICLIB
     Indication: Neoplasm malignant
     Dosage: 100 MG
     Dates: start: 20210916

REACTIONS (9)
  - Lymphoedema [Unknown]
  - Weight increased [Unknown]
  - Nervousness [Unknown]
  - Limb deformity [Unknown]
  - Full blood count abnormal [Unknown]
  - Blood oestrogen increased [Unknown]
  - Fat tissue increased [Unknown]
  - Depression [Unknown]
  - Intentional dose omission [Unknown]

NARRATIVE: CASE EVENT DATE: 20210101
